FAERS Safety Report 8083441-3 (Version None)
Quarter: 2012Q1

REPORT INFORMATION
  Report Type: 
  Country: None (occurrence: None)
  Receive Date: 20120127
  Receipt Date: 20110125
  Transmission Date: 20120608
  Serious: No
  Sender: FDA-Public Use
  Company Number: US-ABBOTT-11P-163-0700715-00

PATIENT
  Sex: Male

DRUGS (2)
  1. HUMIRA [Suspect]
     Indication: PSORIASIS
     Route: 050
     Dates: start: 20101201, end: 20101201
  2. HUMIRA [Suspect]
     Dates: start: 20101201

REACTIONS (7)
  - NAUSEA [None]
  - ASTHENIA [None]
  - VISUAL IMPAIRMENT [None]
  - DECREASED APPETITE [None]
  - POLLAKIURIA [None]
  - INFLUENZA LIKE ILLNESS [None]
  - DRY MOUTH [None]
